FAERS Safety Report 24462516 (Version 1)
Quarter: 2024Q4

REPORT INFORMATION
  Report Type: Spontaneous
  Country: TR (occurrence: TR)
  Receive Date: 20241018
  Receipt Date: 20241018
  Transmission Date: 20250114
  Serious: Yes (Hospitalization, Other)
  Sender: RANBAXY
  Company Number: TR-SUN PHARMACEUTICAL INDUSTRIES LTD-2024R1-473948

PATIENT
  Age: 51 Year
  Sex: Female

DRUGS (3)
  1. LITHIUM [Suspect]
     Active Substance: LITHIUM
     Indication: Mental disorder
     Dosage: 1200 MILLIGRAM, DAILY
     Route: 065
  2. QUETIAPINE [Concomitant]
     Active Substance: QUETIAPINE
     Indication: Mental disorder
     Dosage: 400 MILLIGRAM, DAILY
     Route: 065
  3. VALPROATE [Concomitant]
     Active Substance: VALPROIC ACID
     Indication: Mental disorder
     Dosage: 500 MILLIGRAM, DAILY
     Route: 065

REACTIONS (12)
  - Toxicity to various agents [Unknown]
  - Ataxia [Unknown]
  - Vomiting [Unknown]
  - Dysarthria [Unknown]
  - Chorea [Unknown]
  - Athetosis [Unknown]
  - Agitation [Unknown]
  - Disorientation [Unknown]
  - Diarrhoea [Unknown]
  - Delirium [Unknown]
  - Nausea [Unknown]
  - Fatigue [Unknown]
